FAERS Safety Report 16109066 (Version 1)
Quarter: 2019Q1

REPORT INFORMATION
  Report Type: Spontaneous
  Country: US (occurrence: US)
  Receive Date: 20190323
  Receipt Date: 20190323
  Transmission Date: 20190418
  Serious: No
  Sender: FDA-Public Use
  Company Number: US-THERAPEUTICSMD-2019TMD00076

PATIENT
  Age: 58 Year
  Sex: Female
  Weight: 56.69 kg

DRUGS (5)
  1. AMPYRA [Concomitant]
     Active Substance: DALFAMPRIDINE
  2. IMVEXXY [Suspect]
     Active Substance: ESTRADIOL
     Indication: VULVOVAGINAL PAIN
     Dosage: 10 ?G, 1X/DAY WHILE UPRIGHT BEFORE BED
     Route: 067
     Dates: start: 20181204, end: 20181217
  3. VITAMINS [Concomitant]
     Active Substance: VITAMINS
  4. UNSPECIFIED STEROID INFUSION [Concomitant]
     Indication: MULTIPLE SCLEROSIS
  5. IMVEXXY [Suspect]
     Active Substance: ESTRADIOL
     Dosage: 10 ?G, 2X/WEEK WHILE UPRIGHT BEFORE BED
     Route: 067
     Dates: start: 201812

REACTIONS (4)
  - Peripheral vascular disorder [Not Recovered/Not Resolved]
  - Night sweats [Not Recovered/Not Resolved]
  - Peripheral coldness [Not Recovered/Not Resolved]
  - Off label use [Not Recovered/Not Resolved]

NARRATIVE: CASE EVENT DATE: 20181204
